FAERS Safety Report 9351777 (Version 1)
Quarter: 2013Q2

REPORT INFORMATION
  Report Type: Spontaneous
  Country: US (occurrence: US)
  Receive Date: 20130617
  Receipt Date: 20130617
  Transmission Date: 20140414
  Serious: Yes (Other)
  Sender: FDA-Public Use
  Company Number: US-BIOGENIDEC-2013BI051682

PATIENT
  Sex: Male

DRUGS (2)
  1. AVONEX [Suspect]
     Indication: MULTIPLE SCLEROSIS
     Route: 030
     Dates: end: 20051001
  2. AVONEX [Suspect]
     Indication: MULTIPLE SCLEROSIS
     Route: 030
     Dates: start: 20080301, end: 20110302

REACTIONS (9)
  - Prostate cancer [Unknown]
  - Faecal incontinence [Unknown]
  - Mobility decreased [Not Recovered/Not Resolved]
  - Fall [Recovered/Resolved]
  - Hypophagia [Not Recovered/Not Resolved]
  - Underweight [Not Recovered/Not Resolved]
  - Head injury [Unknown]
  - Eye injury [Unknown]
  - Asthenia [Not Recovered/Not Resolved]
